FAERS Safety Report 24799548 (Version 4)
Quarter: 2025Q3

REPORT INFORMATION
  Report Type: Report from Study
  Country: US (occurrence: US)
  Receive Date: 20250102
  Receipt Date: 20250820
  Transmission Date: 20251021
  Serious: No
  Sender: SUNOVION
  Company Number: US-SUMITOMO PHARMA SWITZERLAND GMBH-2024SPA006172

PATIENT
  Age: 89 Year
  Sex: Male

DRUGS (34)
  1. ORGOVYX [Suspect]
     Active Substance: RELUGOLIX
     Indication: Prostate cancer
     Dosage: 360 MG, SINGLE
     Route: 048
     Dates: start: 20230912, end: 20230912
  2. ORGOVYX [Suspect]
     Active Substance: RELUGOLIX
     Dosage: 120 MG, QD
     Route: 048
     Dates: start: 20230913
  3. ALLOPURINOL [Concomitant]
     Active Substance: ALLOPURINOL
  4. ATORVASTATIN [Concomitant]
     Active Substance: ATORVASTATIN
  5. CEPHALEXIN [Concomitant]
     Active Substance: CEPHALEXIN
  6. COD LIVER OIL [Concomitant]
     Active Substance: COD LIVER OIL
  7. COMBIGAN [Concomitant]
     Active Substance: BRIMONIDINE TARTRATE\TIMOLOL MALEATE
  8. DOCUSATE SODIUM [Concomitant]
     Active Substance: DOCUSATE SODIUM
  9. EZETIMIBE [Concomitant]
     Active Substance: EZETIMIBE
  10. FERROUS SULFATE [Concomitant]
     Active Substance: FERROUS SULFATE
  11. FUROSEMIDE [Concomitant]
     Active Substance: FUROSEMIDE
  12. GABAPENTIN [Concomitant]
     Active Substance: GABAPENTIN
  13. LEVOFLOXACIN [Concomitant]
     Active Substance: LEVOFLOXACIN
  14. LOPERAMIDE [Concomitant]
     Active Substance: LOPERAMIDE
  15. LOSARTAN [Concomitant]
     Active Substance: LOSARTAN
  16. METHYLPREDNISOLONE [Concomitant]
     Active Substance: METHYLPREDNISOLONE
  17. MOXIFLOXACIN OPHTHALMIC [Concomitant]
     Active Substance: MOXIFLOXACIN HYDROCHLORIDE
  18. NABUMETONE [Concomitant]
     Active Substance: NABUMETONE
  19. NAPROXEN [Concomitant]
     Active Substance: NAPROXEN
  20. Nervive pain relieving [Concomitant]
  21. NUCYNTA [Concomitant]
     Active Substance: TAPENTADOL HYDROCHLORIDE
  22. OXYBUTYNIN CHLORIDE [Concomitant]
     Active Substance: OXYBUTYNIN CHLORIDE
  23. PHENAZOPYRIDINE [Concomitant]
     Active Substance: PHENAZOPYRIDINE
  24. PINDOLOL [Concomitant]
     Active Substance: PINDOLOL
  25. PLAQUENIL [Concomitant]
     Active Substance: HYDROXYCHLOROQUINE SULFATE
  26. POTASSIUM CHLORIDE [Concomitant]
     Active Substance: POTASSIUM CHLORIDE
  27. PREDNISOLONE ACETATE [Concomitant]
     Active Substance: PREDNISOLONE ACETATE
  28. PROLENSA [Concomitant]
     Active Substance: BROMFENAC SODIUM
  29. Turmeric complex [Concomitant]
  30. VITAMIN B12 [Concomitant]
     Active Substance: CYANOCOBALAMIN
  31. VITAMIN D3 [Concomitant]
     Active Substance: CHOLECALCIFEROL
  32. TAMSULOSIN [Concomitant]
     Active Substance: TAMSULOSIN
  33. ZETIA [Concomitant]
     Active Substance: EZETIMIBE
  34. COLCHICINE [Concomitant]
     Active Substance: COLCHICINE

REACTIONS (4)
  - Chondrocalcinosis [Unknown]
  - Fatigue [Not Recovered/Not Resolved]
  - Hot flush [Unknown]
  - Product dose omission issue [Unknown]
